FAERS Safety Report 9927721 (Version 1)
Quarter: 2014Q1

REPORT INFORMATION
  Report Type: Spontaneous
  Country: US (occurrence: US)
  Receive Date: 20140227
  Receipt Date: 20140227
  Transmission Date: 20141002
  Serious: Yes (Other)
  Sender: FDA-Public Use
  Company Number: US-DRREDDYS-USA/USA/14/0038404

PATIENT
  Age: 14 Year
  Sex: Female

DRUGS (1)
  1. ZENATANE [Suspect]
     Indication: ACNE
     Route: 048
     Dates: start: 201310

REACTIONS (2)
  - Anxiety [Unknown]
  - Panic attack [Unknown]
